FAERS Safety Report 7127800-1 (Version None)
Quarter: 2010Q4

REPORT INFORMATION
  Report Type: 
  Country: None (occurrence: None)
  Receive Date: 20101130
  Receipt Date: 20090724
  Transmission Date: 20110411
  Serious: No
  Sender: FDA-Public Use
  Company Number: 2009BI023207

PATIENT
  Sex: Male

DRUGS (1)
  1. TYSABRI [Suspect]
     Indication: MULTIPLE SCLEROSIS
     Route: 042
     Dates: start: 20070608

REACTIONS (8)
  - ABDOMINAL PAIN UPPER [None]
  - ANGER [None]
  - CONSTIPATION [None]
  - FATIGUE [None]
  - HYPOPHAGIA [None]
  - MUSCULAR WEAKNESS [None]
  - TREMOR [None]
  - WEIGHT DECREASED [None]
